FAERS Safety Report 7815103-9 (Version None)
Quarter: 2011Q4

REPORT INFORMATION
  Report Type: 
  Country: None (occurrence: None)
  Receive Date: 20111014
  Receipt Date: 20111014
  Transmission Date: 20120403
  Serious: Yes (Other)
  Sender: FDA-Public Use
  Company Number: None

PATIENT
  Age: 49 Year
  Sex: Male
  Weight: 81.646 kg

DRUGS (1)
  1. CIALIS [Suspect]
     Indication: ERECTILE DYSFUNCTION
     Dosage: AS NEEDED
     Dates: start: 20111004, end: 20111013

REACTIONS (5)
  - DYSPEPSIA [None]
  - HEADACHE [None]
  - PAIN [None]
  - ANGER [None]
  - LOCAL SWELLING [None]
